FAERS Safety Report 5605138-9 (Version None)
Quarter: 2008Q1

REPORT INFORMATION
  Report Type: 
  Country: None (occurrence: None)
  Receive Date: 20080123
  Receipt Date: 20080110
  Transmission Date: 20080703
  Serious: Yes (Other)
  Sender: FDA-Public Use
  Company Number: 2008US000200

PATIENT
  Age: 13 Month
  Sex: Female

DRUGS (3)
  1. PROGRAF [Suspect]
     Indication: LIVER TRANSPLANT
     Dosage: 0.1 MG/KG,
  2. METHYLPREDNISOLONE [Concomitant]
  3. SULFAMETHOXAZOLE W/TRIMETHOPRIM (SULFAMETHOXAZOLE, TRIMETHOPRIM) [Concomitant]

REACTIONS (2)
  - COLD TYPE HAEMOLYTIC ANAEMIA [None]
  - MYCOPLASMA SEROLOGY POSITIVE [None]
